FAERS Safety Report 15566357 (Version 3)
Quarter: 2019Q1

REPORT INFORMATION
  Report Type: Spontaneous
  Country: US (occurrence: US)
  Receive Date: 20181030
  Receipt Date: 20190129
  Transmission Date: 20190417
  Serious: Yes (Other)
  Sender: FDA-Public Use
  Company Number: US-BAYER-2018-201464

PATIENT
  Age: 21 Year
  Sex: Female
  Weight: 67.3 kg

DRUGS (2)
  1. MIRENA [Suspect]
     Active Substance: LEVONORGESTREL
     Indication: CONTRACEPTION
     Dosage: 20 MCG/24HR, CONT
     Route: 015
     Dates: start: 20171207
  2. MIRENA [Suspect]
     Active Substance: LEVONORGESTREL
     Indication: CONTRACEPTION

REACTIONS (5)
  - Drug ineffective [None]
  - Dyspareunia [Recovered/Resolved]
  - Pelvic pain [Recovered/Resolved]
  - Pregnancy with contraceptive device [None]
  - Device expulsion [None]

NARRATIVE: CASE EVENT DATE: 20180318
